FAERS Safety Report 8208389 (Version 5)
Quarter: 2013Q4

REPORT INFORMATION
  Report Type: Report from Study
  Country: CA (occurrence: CA)
  Receive Date: 20111028
  Receipt Date: 20131111
  Transmission Date: 20140711
  Serious: Yes (Hospitalization)
  Sender: FDA-Public Use
  Company Number: CA-BRISTOL-MYERS SQUIBB COMPANY-16202152

PATIENT
  Age: 49 Year
  Sex: Male
  Weight: 37.6 kg

DRUGS (9)
  1. CETUXIMAB [Suspect]
     Indication: SQUAMOUS CELL CARCINOMA OF HEAD AND NECK
     Dosage: 250MG/M2 DAY 1,8,15. 16JUN11-19OCT11?400MG/M2 DAY1 OF CYCLE1.26MAY11
     Route: 042
     Dates: start: 20110526
  2. CISPLATIN FOR INJ [Suspect]
     Indication: SQUAMOUS CELL CARCINOMA OF HEAD AND NECK
     Dosage: LAST DOSE:11AUG11
     Route: 042
     Dates: start: 20110526
  3. 5-FLUOROURACIL [Suspect]
     Indication: SQUAMOUS CELL CARCINOMA OF HEAD AND NECK
     Dosage: LAST DOSE:11AUG11
     Route: 042
     Dates: start: 20110526
  4. MAGNESIUM [Concomitant]
     Indication: HYPOMAGNESAEMIA
     Dates: start: 20110908
  5. POTASSIUM [Concomitant]
     Indication: HYPOKALAEMIA
     Dates: start: 20111006
  6. ZOLOFT [Concomitant]
     Indication: ANXIETY
     Dates: start: 201107
  7. FENTANYL [Concomitant]
     Indication: PAIN
     Dates: start: 20110829
  8. DILAUDID [Concomitant]
     Indication: PAIN
     Dates: start: 201012
  9. LOVENOX [Concomitant]
     Indication: PULMONARY EMBOLISM
     Dates: start: 20110903, end: 20111021

REACTIONS (1)
  - Anaemia [Recovered/Resolved]
